FAERS Safety Report 5228062-2 (Version None)
Quarter: 2007Q1

REPORT INFORMATION
  Report Type: 
  Country: None (occurrence: None)
  Receive Date: 20061201
  Receipt Date: 20061023
  Transmission Date: 20070707
  Serious: No
  Sender: FDA-Public Use
  Company Number: US200610001458

PATIENT
  Age: 55 Year
  Sex: Male

DRUGS (2)
  1. ALIMTA [Suspect]
     Indication: PLEURAL MESOTHELIOMA MALIGNANT RECURRENT
     Dosage: 500 MG/M2
     Dates: start: 20060327
  2. VITAMINS NOS (VITAMINS NOS) [Concomitant]

REACTIONS (1)
  - RECALL PHENOMENON [None]
